FAERS Safety Report 11282961 (Version 1)
Quarter: 2015Q3

REPORT INFORMATION
  Report Type: Spontaneous
  Country: US (occurrence: None)
  Receive Date: 20150717
  Receipt Date: 20150717
  Transmission Date: 20151125
  Serious: No
  Sender: FDA-Public Use
  Company Number: None

PATIENT
  Age: 73 Year
  Sex: Female

DRUGS (1)
  1. DYSPORT [Suspect]
     Active Substance: ABOBOTULINUMTOXINA
     Indication: TORTICOLLIS
     Dosage: 500 UNITS, EVERY 91 DAYS
     Route: 030
     Dates: start: 20140224

REACTIONS (4)
  - Injection site pruritus [None]
  - Incorrect dose administered [None]
  - Injection site erythema [None]
  - Movement disorder [None]

NARRATIVE: CASE EVENT DATE: 20150504
